FAERS Safety Report 10206939 (Version 1)
Quarter: 2014Q2

REPORT INFORMATION
  Report Type: Spontaneous
  Country: US (occurrence: None)
  Receive Date: 20140527
  Receipt Date: 20140527
  Transmission Date: 20141212
  Serious: Yes (Hospitalization)
  Sender: FDA-Public Use
  Company Number: None

PATIENT
  Age: 68 Year
  Sex: Female

DRUGS (9)
  1. TACROLIMUS [Suspect]
     Indication: IMMUNOSUPPRESSION
     Route: 048
     Dates: start: 20120907
  2. ATORVASTATIN [Concomitant]
  3. AZITHROMYCIN [Concomitant]
  4. HEPARIN [Concomitant]
  5. INSULIN ASPART [Concomitant]
  6. NYSTATIN [Concomitant]
  7. PREDNISONE [Concomitant]
  8. VALACYCLOVIR [Concomitant]
  9. VORICONAZOLE [Concomitant]

REACTIONS (2)
  - Aspergillus infection [None]
  - Blood creatinine increased [None]
